FAERS Safety Report 6077589-2 (Version None)
Quarter: 2009Q1

REPORT INFORMATION
  Report Type: 
  Country: None (occurrence: None)
  Receive Date: 20090213
  Receipt Date: 20090206
  Transmission Date: 20090719
  Serious: Yes (Life-Threatening)
  Sender: FDA-Public Use
  Company Number: GB-ELI_LILLY_AND_COMPANY-GB200902001244

PATIENT
  Age: 47 Year
  Sex: Female
  Weight: 89 kg

DRUGS (6)
  1. BYETTA [Suspect]
     Indication: DIABETES MELLITUS
     Dosage: 10 UG, 2/D
     Route: 058
     Dates: start: 20070830, end: 20090120
  2. ASPIRIN [Concomitant]
     Indication: DIABETES MELLITUS
     Dosage: 75 MG, DAILY (1/D)
     Route: 048
  3. GLICLAZIDE [Concomitant]
     Indication: DIABETES MELLITUS
     Dosage: 160 MG, 2/D
     Route: 048
     Dates: end: 20090120
  4. GLUCOBAY [Concomitant]
     Indication: DIABETES MELLITUS
     Dosage: 50 MG, 3/D
     Route: 048
     Dates: end: 20090120
  5. METFORMIN HCL [Concomitant]
     Indication: DIABETES MELLITUS
     Dosage: 850 MG, 3/D
     Route: 048
  6. RAMIPRIL [Concomitant]
     Indication: DIABETES MELLITUS
     Dosage: 1.25 MG, DAILY (1/D)
     Route: 048

REACTIONS (1)
  - BREAST CANCER [None]
